FAERS Safety Report 18380149 (Version 5)
Quarter: 2025Q3

REPORT INFORMATION
  Report Type: Other
  Country: CA (occurrence: CA)
  Receive Date: 20201014
  Receipt Date: 20250827
  Transmission Date: 20251020
  Serious: Yes (Other)
  Sender: INTERCEPT PHARMACEUTICALS
  Company Number: CA-INTERCEPT-PM2020002047

PATIENT
  Age: 56 Year
  Sex: Female
  Weight: 74 kg

DRUGS (4)
  1. OCALIVA [Suspect]
     Active Substance: OBETICHOLIC ACID
     Indication: Primary biliary cholangitis
     Dosage: 5 MG, QD
     Route: 048
     Dates: start: 20181019
  2. OCALIVA [Suspect]
     Active Substance: OBETICHOLIC ACID
     Dosage: 10 MG, QD (X TIMES 1 DAY(S))
     Route: 048
     Dates: start: 201908
  3. URSO [Concomitant]
     Active Substance: URSODIOL
     Indication: Primary biliary cholangitis
     Route: 048
     Dates: start: 20150101, end: 20150101
  4. MULTIVITAMINS                      /00116001/ [Concomitant]

REACTIONS (14)
  - Hepatic fibrosis [Unknown]
  - Metabolic dysfunction-associated liver disease [Unknown]
  - Rheumatoid arthritis [Not Recovered/Not Resolved]
  - Sjogren^s syndrome [Unknown]
  - Weight increased [Unknown]
  - Meibomian gland dysfunction [Unknown]
  - Dacryostenosis acquired [Not Recovered/Not Resolved]
  - Erythema of eyelid [Unknown]
  - Nasal dryness [Unknown]
  - Dry eye [Not Recovered/Not Resolved]
  - Fall [Unknown]
  - Wrist fracture [Unknown]
  - Wrist surgery [Unknown]
  - Head injury [Recovering/Resolving]

NARRATIVE: CASE EVENT DATE: 20200101
